FAERS Safety Report 4500367-X (Version None)
Quarter: 2004Q4

REPORT INFORMATION
  Report Type: 
  Country: None (occurrence: None)
  Receive Date: 20041109
  Receipt Date: 20041026
  Transmission Date: 20050328
  Serious: Yes (Death)
  Sender: FDA-Public Use
  Company Number: USA041080456

PATIENT
  Sex: Female

DRUGS (1)
  1. SYMBYAX [Suspect]

REACTIONS (1)
  - COMPLETED SUICIDE [None]
